FAERS Safety Report 5329317-3 (Version None)
Quarter: 2007Q2

REPORT INFORMATION
  Report Type: 
  Country: None (occurrence: None)
  Receive Date: 20070518
  Receipt Date: 20070508
  Transmission Date: 20071010
  Serious: Yes (Life-Threatening, Hospitalization)
  Sender: FDA-Public Use
  Company Number: GB-PFIZER INC-2007038042

PATIENT
  Age: 56 Year
  Sex: Male

DRUGS (2)
  1. LYRICA [Suspect]
     Route: 048
  2. VALPROATE SODIUM [Concomitant]

REACTIONS (1)
  - CONVULSION [None]
